FAERS Safety Report 8045462-6 (Version None)
Quarter: 2012Q1

REPORT INFORMATION
  Report Type: 
  Country: None (occurrence: None)
  Receive Date: 20120111
  Receipt Date: 20120111
  Transmission Date: 20120608
  Serious: No
  Sender: FDA-Public Use
  Company Number: None

PATIENT
  Sex: Female
  Weight: 67.1324 kg

DRUGS (1)
  1. COLCRYS [Suspect]
     Indication: GOUT
     Dosage: .6 MG 1 A DAY MOUTH
     Route: 048
     Dates: start: 20110912, end: 20110913

REACTIONS (1)
  - DIARRHOEA [None]
